FAERS Safety Report 5159531-1 (Version None)
Quarter: 2006Q4

REPORT INFORMATION
  Report Type: 
  Country: None (occurrence: None)
  Receive Date: 20061120
  Receipt Date: 20061109
  Transmission Date: 20070319
  Serious: No
  Sender: FDA-Public Use
  Company Number: DE-2006-021720

PATIENT
  Sex: Female

DRUGS (1)
  1. MIRENA [Suspect]
     Dosage: 20 UG/DAY, INTRA-UTERINE
     Route: 015

REACTIONS (2)
  - CONNECTIVE TISSUE DISORDER [None]
  - INTERVERTEBRAL DISC PROTRUSION [None]
